FAERS Safety Report 8192962-4 (Version None)
Quarter: 2012Q1

REPORT INFORMATION
  Report Type: 
  Country: None (occurrence: None)
  Receive Date: 20120308
  Receipt Date: 20120228
  Transmission Date: 20120608
  Serious: Yes (Hospitalization)
  Sender: FDA-Public Use
  Company Number: US-BRISTOL-MYERS SQUIBB COMPANY-16423220

PATIENT
  Age: 61 Year
  Sex: Male

DRUGS (3)
  1. VELCADE [Suspect]
     Indication: MULTIPLE MYELOMA
     Dosage: FREQ:1,8,15,22 OF 28 DAYS CYCLE
     Route: 042
     Dates: start: 20110908, end: 20111013
  2. CYTOXAN [Suspect]
     Indication: MULTIPLE MYELOMA
     Route: 042
     Dates: start: 20110908, end: 20110908
  3. DEXAMETHASONE [Suspect]
     Indication: MULTIPLE MYELOMA
     Route: 048
     Dates: start: 20110908, end: 20111013

REACTIONS (1)
  - BACK PAIN [None]
